FAERS Safety Report 5154374-7 (Version None)
Quarter: 2006Q4

REPORT INFORMATION
  Report Type: 
  Country: None (occurrence: None)
  Receive Date: 20061114
  Receipt Date: 20061030
  Transmission Date: 20070319
  Serious: Yes (Hospitalization, Disabling, Other)
  Sender: FDA-Public Use
  Company Number: 2004033155

PATIENT
  Age: 40 Year
  Sex: Female

DRUGS (6)
  1. VFEND [Suspect]
     Indication: ASPERGILLOSIS
     Dosage: 300 MG, ORAL
     Route: 048
     Dates: start: 20031212
  2. PROGRAF [Suspect]
     Indication: TRANSPLANT
     Dosage: 7 MG, ORAL
     Route: 048
     Dates: start: 20030101
  3. CELLCEPT [Suspect]
     Indication: TRANSPLANT
     Dosage: 1 GRAM, ORAL
     Route: 048
     Dates: start: 20030101
  4. HUMALOG MIX 25 [Suspect]
     Indication: DIABETES MELLITUS INSULIN-DEPENDENT
     Dosage: (4 IN 1 D), SUBCUTANEOUS
     Route: 058
     Dates: start: 19810101
  5. IMURAN [Suspect]
     Indication: PROPHYLAXIS AGAINST TRANSPLANT REJECTION
     Dosage: 1 GRAM, ORAL
     Route: 048
     Dates: start: 20030810
  6. CORTANCYL (PREDNISONE) [Suspect]
     Indication: TRANSPLANT
     Dosage: 20 MG, ORAL
     Route: 048
     Dates: start: 20030101

REACTIONS (6)
  - BILIARY TRACT INFECTION [None]
  - CHOLECYSTITIS [None]
  - CHOLELITHIASIS [None]
  - CHOLESTASIS [None]
  - ENTEROCOCCAL INFECTION [None]
  - THERAPY NON-RESPONDER [None]
